FAERS Safety Report 15797461 (Version 1)
Quarter: 2019Q1

REPORT INFORMATION
  Report Type: Spontaneous
  Country: DE (occurrence: DE)
  Receive Date: 20190108
  Receipt Date: 20190108
  Transmission Date: 20190417
  Serious: Yes (Hospitalization)
  Sender: FDA-Public Use
  Company Number: PHHY2019DE001331

PATIENT
  Age: 59 Year
  Sex: Female

DRUGS (4)
  1. ORENCIA [Concomitant]
     Active Substance: ABATACEPT
     Indication: RHEUMATOID ARTHRITIS
     Dosage: 1 OT, UNK
     Route: 065
     Dates: start: 20181204
  2. METHOTREXAT [Suspect]
     Active Substance: METHOTREXATE
     Indication: RHEUMATOID ARTHRITIS
     Dosage: 7.5 MG, UNK
     Route: 065
  3. METHOTREXAT [Suspect]
     Active Substance: METHOTREXATE
     Dosage: 7 MG, UNK
     Route: 065
  4. TOCILIZUMAB. [Suspect]
     Active Substance: TOCILIZUMAB
     Indication: RHEUMATOID ARTHRITIS
     Dosage: 592 MG, UNK
     Route: 042
     Dates: end: 20180702

REACTIONS (1)
  - Medical device site joint infection [Recovered/Resolved]

NARRATIVE: CASE EVENT DATE: 20180708
